FAERS Safety Report 9882390 (Version 1)
Quarter: 2014Q1

REPORT INFORMATION
  Report Type: Spontaneous
  Country: GB (occurrence: GB)
  Receive Date: 20140207
  Receipt Date: 20140207
  Transmission Date: 20141002
  Serious: Yes (Other)
  Sender: FDA-Public Use
  Company Number: GB-GLAXOSMITHKLINE-B0966935A

PATIENT
  Age: 60 Year
  Sex: Female

DRUGS (8)
  1. CLENIL MODULITE [Suspect]
     Indication: ASTHMA
     Dosage: 2U PER DAY
     Route: 055
     Dates: start: 201312, end: 201401
  2. GABAPENTIN [Concomitant]
  3. IBUPROFEN [Concomitant]
  4. LAXIDO [Concomitant]
  5. OMEPRAZOLE [Concomitant]
  6. PARACETAMOL [Concomitant]
  7. TRAMADOL HYDROCHLORIDE [Concomitant]
  8. VAGIFEM [Concomitant]

REACTIONS (1)
  - Muscle spasms [Recovering/Resolving]
